FAERS Safety Report 8560388-7 (Version None)
Quarter: 2012Q3

REPORT INFORMATION
  Report Type: 
  Country: None (occurrence: None)
  Receive Date: 20120802
  Receipt Date: 20120725
  Transmission Date: 20120928
  Serious: Yes (Other)
  Sender: FDA-Public Use
  Company Number: TW-ABBOTT-12P-153-0962892-00

PATIENT

DRUGS (1)
  1. ADALIMUMAB [Suspect]
     Indication: PSORIASIS

REACTIONS (1)
  - COLON CANCER [None]
